FAERS Safety Report 17345897 (Version 3)
Quarter: 2020Q3

REPORT INFORMATION
  Report Type: Spontaneous
  Country: US (occurrence: US)
  Receive Date: 20200129
  Receipt Date: 20200723
  Transmission Date: 20201102
  Serious: Yes (Hospitalization, Other)
  Sender: FDA-Public Use
  Company Number: US-009507513-2001USA009847

PATIENT
  Age: 72 Year
  Sex: Male
  Weight: 79.82 kg

DRUGS (1)
  1. TICE BCG [Suspect]
     Active Substance: BACILLUS CALMETTE-GUERIN SUBSTRAIN TICE LIVE ANTIGEN
     Indication: BLADDER CANCER
     Dosage: 1 VIAL INSTILLED TO BLADDER CANCER FOR 6 WEEKS
     Route: 043
     Dates: start: 201801

REACTIONS (9)
  - Product availability issue [Unknown]
  - Bladder cancer recurrent [Recovered/Resolved]
  - Product dose omission issue [Unknown]
  - White blood cell count increased [Unknown]
  - Blood creatinine increased [Unknown]
  - Haemoglobin decreased [Unknown]
  - Haematocrit decreased [Unknown]
  - Blood urea increased [Unknown]
  - Blood glucose increased [Unknown]

NARRATIVE: CASE EVENT DATE: 2019
